FAERS Safety Report 8988925 (Version 3)
Quarter: 2013Q2

REPORT INFORMATION
  Report Type: Spontaneous
  Country: GB (occurrence: GB)
  Receive Date: 20121228
  Receipt Date: 20130527
  Transmission Date: 20140414
  Serious: Yes (Hospitalization)
  Sender: FDA-Public Use
  Company Number: PHFR2012GB006626

PATIENT
  Age: 29 Year
  Sex: Male

DRUGS (2)
  1. CLOZARIL [Suspect]
     Indication: SCHIZOPHRENIA
     Dosage: UNK
     Route: 048
     Dates: start: 20110110
  2. CLOZARIL [Suspect]
     Dosage: 50 MG
     Route: 048
     Dates: start: 20121224

REACTIONS (4)
  - Viral infection [Recovering/Resolving]
  - Vomiting [Recovering/Resolving]
  - White blood cell count increased [Unknown]
  - Neutrophil count increased [Unknown]
